FAERS Safety Report 16478230 (Version 1)
Quarter: 2019Q2

REPORT INFORMATION
  Report Type: Spontaneous
  Country: MY (occurrence: MY)
  Receive Date: 20190626
  Receipt Date: 20190626
  Transmission Date: 20190711
  Serious: Yes (Other)
  Sender: FDA-Public Use
  Company Number: MY-PFIZER INC-2018168043

PATIENT
  Age: 48 Year
  Sex: Female

DRUGS (6)
  1. DYNASTAT [Concomitant]
     Active Substance: PARECOXIB SODIUM
     Dosage: UNK
  2. CONTROLOC [Concomitant]
     Active Substance: PANTOPRAZOLE SODIUM
     Dosage: UNK
  3. DEXA [BETAMETHASONE] [Concomitant]
     Dosage: 4 MG, 8 HOURLY TIMES 3 DOSES
     Dates: start: 20180418
  4. METHYLCOBAL [Concomitant]
     Active Substance: METHYLCOBALAMIN
     Dosage: UNK
  5. LYRICA [Suspect]
     Active Substance: PREGABALIN
     Indication: PAIN
     Dosage: 75 MG, 1X/DAY (ON NIGHT)
     Route: 048
     Dates: start: 20180416, end: 20180418
  6. NEUROBION [HYDROXOCOBALAMIN;PYRIDOXINE HYDROCHLORIDE;THIAMINE HYDROCHL [Concomitant]
     Dosage: UNK

REACTIONS (6)
  - Somnolence [Recovered/Resolved]
  - Abdominal distension [Recovered/Resolved]
  - Dizziness [Recovered/Resolved]
  - Dyspnoea [Recovered/Resolved]
  - Fatigue [Recovered/Resolved]
  - Chest discomfort [Recovered/Resolved]

NARRATIVE: CASE EVENT DATE: 20180417
